FAERS Safety Report 19614964 (Version 1)
Quarter: 2021Q3

REPORT INFORMATION
  Report Type: Spontaneous
  Country: US (occurrence: US)
  Receive Date: 20210727
  Receipt Date: 20210727
  Transmission Date: 20211014
  Serious: No
  Sender: FDA-Public Use
  Company Number: None

PATIENT
  Age: 55 Year
  Sex: Female
  Weight: 111.15 kg

DRUGS (11)
  1. FAMOTIDINE 40MG [Concomitant]
     Active Substance: FAMOTIDINE
  2. LEVOTHYROXINE 50MG [Concomitant]
     Active Substance: LEVOTHYROXINE
  3. MODAFINIL 400MG [Concomitant]
  4. ESVENLAFAXINE 50MG [Concomitant]
  5. TRIAMTERENE. [Concomitant]
     Active Substance: TRIAMTERENE
  6. ROSUVSTATIN 20MG [Concomitant]
  7. WEGOVY [Suspect]
     Active Substance: SEMAGLUTIDE
     Indication: WEIGHT DECREASED
     Dosage: ?          OTHER FREQUENCY:ONCE A WEEK;?
     Route: 058
     Dates: start: 20210716, end: 20210716
  8. ONDANSETRON [Concomitant]
     Active Substance: ONDANSETRON
  9. DESVENLAFAXINE 50MG [Concomitant]
     Active Substance: DESVENLAFAXINE
  10. PANTOPRAZOLE 40MG [Concomitant]
     Active Substance: PANTOPRAZOLE SODIUM
  11. AMLODIPINE [Concomitant]
     Active Substance: AMLODIPINE BESYLATE

REACTIONS (2)
  - Nausea [None]
  - Dizziness [None]

NARRATIVE: CASE EVENT DATE: 20210719
